FAERS Safety Report 5556917-8 (Version None)
Quarter: 2007Q4

REPORT INFORMATION
  Report Type: 
  Country: None (occurrence: None)
  Receive Date: 20071214
  Receipt Date: 20071207
  Transmission Date: 20080405
  Serious: Yes (Other)
  Sender: FDA-Public Use
  Company Number: PHBS2007BR20642

PATIENT
  Age: 83 Year
  Sex: Female
  Weight: 69 kg

DRUGS (4)
  1. LUDIOMIL [Suspect]
     Indication: DEPRESSION
     Dosage: 75 MG, QHS
     Route: 048
     Dates: start: 19930101
  2. LEXOTAN [Concomitant]
     Indication: DEPRESSION
     Dosage: 1.5 MG, BID
     Route: 048
     Dates: start: 20040101
  3. SUSTRATE [Concomitant]
     Indication: ANGINA PECTORIS
     Dosage: UNK, PRN
     Route: 048
  4. DILACORON [Concomitant]
     Indication: CORONARY ARTERY DISEASE
     Dosage: 240 MG/D
     Route: 048
     Dates: start: 19990101

REACTIONS (5)
  - ASTHENIA [None]
  - DIZZINESS [None]
  - DRUG DEPENDENCE [None]
  - LABYRINTHITIS [None]
  - MUSCULAR WEAKNESS [None]
